FAERS Safety Report 15458881 (Version 4)
Quarter: 2018Q4

REPORT INFORMATION
  Report Type: Spontaneous
  Country: US (occurrence: US)
  Receive Date: 20181003
  Receipt Date: 20181218
  Transmission Date: 20190204
  Serious: Yes (Hospitalization)
  Sender: FDA-Public Use
  Company Number: US-ALEXION PHARMACEUTICALS INC.-A201812529

PATIENT
  Age: 38 Year
  Sex: Female
  Weight: 86.17 kg

DRUGS (2)
  1. SOLIRIS [Suspect]
     Active Substance: ECULIZUMAB
     Dosage: 1200 MG, Q2W
     Route: 042
     Dates: start: 20160412
  2. SOLIRIS [Suspect]
     Active Substance: ECULIZUMAB
     Indication: PAROXYSMAL NOCTURNAL HAEMOGLOBINURIA
     Dosage: 900 MG, Q2W
     Route: 042
     Dates: start: 20080916, end: 20160329

REACTIONS (7)
  - Pain [Recovered/Resolved]
  - Lymphocyte morphology abnormal [Unknown]
  - Blood lactate dehydrogenase increased [Recovering/Resolving]
  - Incorrect dose administered [Not Recovered/Not Resolved]
  - Haemoglobin decreased [Recovering/Resolving]
  - Inappropriate schedule of product administration [Recovered/Resolved]
  - Neutrophil count decreased [Not Recovered/Not Resolved]

NARRATIVE: CASE EVENT DATE: 20080916
